FAERS Safety Report 7275052-4 (Version None)
Quarter: 2011Q1

REPORT INFORMATION
  Report Type: 
  Country: None (occurrence: None)
  Receive Date: 20110204
  Receipt Date: 20110126
  Transmission Date: 20110831
  Serious: No
  Sender: FDA-Public Use
  Company Number: B0697092A

PATIENT
  Sex: Female

DRUGS (6)
  1. RELENZA [Suspect]
     Indication: INFLUENZA
     Dosage: 80MG PER DAY
     Route: 055
     Dates: start: 20110123, end: 20110123
  2. ZITHROMAX [Concomitant]
     Indication: BRONCHITIS
     Dosage: 500MG PER DAY
     Route: 048
     Dates: start: 20110121
  3. ZESULAN [Concomitant]
     Indication: BRONCHITIS
     Dosage: 6G PER DAY
     Route: 048
     Dates: start: 20110121
  4. CODEINE SULFATE [Concomitant]
     Indication: BRONCHITIS
     Dosage: 3G PER DAY
     Route: 048
     Dates: start: 20110121
  5. SELBEX [Concomitant]
     Indication: BRONCHITIS
     Dosage: 150G PER DAY
     Route: 048
     Dates: start: 20110121
  6. CALONAL [Concomitant]
     Indication: BRONCHITIS
     Route: 048
     Dates: start: 20110121

REACTIONS (2)
  - ACCIDENTAL OVERDOSE [None]
  - NO ADVERSE EVENT [None]
